FAERS Safety Report 11977218 (Version 3)
Quarter: 2016Q1

REPORT INFORMATION
  Report Type: Spontaneous
  Country: ES (occurrence: ES)
  Receive Date: 20160129
  Receipt Date: 20160217
  Transmission Date: 20160526
  Serious: Yes (Other)
  Sender: FDA-Public Use
  Company Number: PHHY2016ES011498

PATIENT
  Age: 4 Year
  Sex: Male
  Weight: 25 kg

DRUGS (7)
  1. REVOLADE [Suspect]
     Active Substance: ELTROMBOPAG
     Indication: IMMUNE THROMBOCYTOPENIC PURPURA
     Dosage: 25 MG, UNK
     Route: 048
     Dates: start: 20150820
  2. REVOLADE [Suspect]
     Active Substance: ELTROMBOPAG
     Dosage: 50 MG, UNK
     Route: 048
     Dates: start: 20150909
  3. REVOLADE [Suspect]
     Active Substance: ELTROMBOPAG
     Dosage: 75 MG, UNK
     Route: 048
     Dates: start: 20150922
  4. REVOLADE [Suspect]
     Active Substance: ELTROMBOPAG
     Dosage: 50 MG, QD
     Route: 065
     Dates: start: 20160211
  5. REVOLADE [Suspect]
     Active Substance: ELTROMBOPAG
     Dosage: 25 MG, QD
     Route: 065
     Dates: start: 20160205
  6. REVOLADE [Suspect]
     Active Substance: ELTROMBOPAG
     Dosage: 75 MG, UNK
     Route: 048
     Dates: start: 20151105
  7. REVOLADE [Suspect]
     Active Substance: ELTROMBOPAG
     Dosage: 75 MG, UNK
     Route: 048
     Dates: start: 20151218

REACTIONS (4)
  - Catarrh [Unknown]
  - Therapeutic response decreased [Unknown]
  - Thrombocytosis [Recovering/Resolving]
  - Petechiae [Not Recovered/Not Resolved]

NARRATIVE: CASE EVENT DATE: 201601
